FAERS Safety Report 6144100 (Version 3)
Quarter: 2013Q1

REPORT INFORMATION
  Report Type: Spontaneous
  Country: FR (occurrence: None)
  Receive Date: 20060927
  Receipt Date: 20121015
  Transmission Date: 20140127
  Serious: Yes (Hospitalization, Other)
  Sender: FDA-Public Use
  Company Number: 220002N06FRA

PATIENT
  Age: 56 Year
  Sex: Female

DRUGS (8)
  1. SAIZEN [Suspect]
     Indication: HYPOPITUITARISM
     Dosage: 0.8 MG, 1 IN 1 D
     Dates: start: 20030625
  2. HYDROCORTISONE [Suspect]
     Indication: HYPOPITUITARISM
     Dosage: 20 MG, 1 IN 1 D, ORAL
     Route: 048
     Dates: start: 1982
  3. KLIOGEST [Suspect]
     Indication: HYPOPITUITARISM
     Dosage: 1 DF, 1 IN 1D, ORAL
     Route: 048
     Dates: start: 20030806
  4. LEVOTHYROX [Suspect]
     Indication: HYPOPITUITARISM
     Dosage: 100 MCG, 1 IN 1 D, ORAL
     Route: 048
     Dates: start: 20051207
  5. LIPANTHYL [Suspect]
     Indication: HYPERTRIGLYCERIDAEMIA
     Dosage: 160 MG, 1 IN 1 D, ORAL
     Route: 048
     Dates: start: 20040622
  6. OROCAL D3 [Suspect]
     Indication: OSTEOPENIA
     Dosage: 1 DF, 1 IN 1 D, ORAL
     Route: 048
     Dates: start: 20060404
  7. PROZAC (FLUOXETINE HYDROCHLORIDE) (FLUOXETINE HYDROCHLORIDE) [Suspect]
     Indication: DEPRESSION
     Dosage: 20 MG, 1 IN 1 D, ORAL
     Route: 048
     Dates: start: 20030806
  8. ZOVIRAX [Concomitant]

REACTIONS (5)
  - Herpes pharyngitis [None]
  - Meningism [None]
  - Brain oedema [None]
  - Cerebrovascular disorder [None]
  - Meningitis [None]
